FAERS Safety Report 18427516 (Version 1)
Quarter: 2020Q4

REPORT INFORMATION
  Report Type: Spontaneous
  Country: CN (occurrence: CN)
  Receive Date: 20201026
  Receipt Date: 20201026
  Transmission Date: 20210114
  Serious: Yes (Other)
  Sender: FDA-Public Use
  Company Number: CN-PFIZER INC-2020401254

PATIENT
  Age: 77 Year
  Sex: Female
  Weight: 58 kg

DRUGS (2)
  1. LIPITOR [Suspect]
     Active Substance: ATORVASTATIN CALCIUM
     Indication: SYMPTOMATIC TREATMENT
     Dosage: 20 MG, 1X/DAY
     Route: 048
     Dates: start: 20200916, end: 20200916
  2. LIPITOR [Suspect]
     Active Substance: ATORVASTATIN CALCIUM
     Indication: LIPIDS ABNORMAL

REACTIONS (3)
  - Red blood cell count increased [Unknown]
  - Blood albumin decreased [Unknown]
  - Rash erythematous [Recovering/Resolving]

NARRATIVE: CASE EVENT DATE: 20200916
